FAERS Safety Report 5203322-X (Version None)
Quarter: 2006Q4

REPORT INFORMATION
  Report Type: 
  Country: None (occurrence: None)
  Receive Date: 20061016
  Receipt Date: 20060511
  Transmission Date: 20070319
  Serious: Yes (Other)
  Sender: FDA-Public Use
  Company Number: 2006055225

PATIENT
  Age: 70 Year
  Sex: Female
  Weight: 84.369 kg

DRUGS (5)
  1. NEURONTIN [Suspect]
     Indication: DIABETIC NEUROPATHY
     Dosage: SEE IMAGE
     Route: 048
  2. NEURONTIN [Suspect]
     Indication: HYPOAESTHESIA
     Dosage: SEE IMAGE
     Route: 048
  3. GLUCOTROL XL [Concomitant]
  4. GLUCOPHAGE XR (METFORMIN HYDROCHLORIDE) [Concomitant]
  5. TRANXENE [Concomitant]

REACTIONS (7)
  - CATARACT [None]
  - DRUG INEFFECTIVE [None]
  - FEELING DRUNK [None]
  - HYPOAESTHESIA [None]
  - JOINT STIFFNESS [None]
  - OEDEMA PERIPHERAL [None]
  - SENSORY DISTURBANCE [None]
